FAERS Safety Report 9703580 (Version 1)
Quarter: 2013Q4

REPORT INFORMATION
  Report Type: Spontaneous
  Country: US (occurrence: US)
  Receive Date: 20131122
  Receipt Date: 20131122
  Transmission Date: 20140711
  Serious: No
  Sender: FDA-Public Use
  Company Number: US-PFIZER INC-2013332017

PATIENT
  Age: 36 Year
  Sex: Male
  Weight: 136 kg

DRUGS (1)
  1. VIAGRA [Suspect]
     Indication: ERECTILE DYSFUNCTION
     Dosage: 100 MG, 1X/DAY
     Dates: end: 2012

REACTIONS (1)
  - Drug ineffective [Unknown]
